FAERS Safety Report 7314296-X (Version None)
Quarter: 2011Q1

REPORT INFORMATION
  Report Type: 
  Country: None (occurrence: None)
  Receive Date: 20110225
  Receipt Date: 20101019
  Transmission Date: 20110831
  Serious: No
  Sender: FDA-Public Use
  Company Number: US-MYLANLABS-2010S1012381

PATIENT
  Age: 13 Year
  Sex: Male

DRUGS (2)
  1. AMNESTEEM [Suspect]
     Indication: ACNE CYSTIC
     Route: 048
     Dates: start: 20100305
  2. AMNESTEEM [Suspect]
     Route: 048
     Dates: end: 20100525

REACTIONS (7)
  - PAIN [None]
  - SINUSITIS [None]
  - WHITE BLOOD CELL COUNT INCREASED [None]
  - ACNE [None]
  - PLATELET COUNT INCREASED [None]
  - BONE DISORDER [None]
  - PYREXIA [None]
